FAERS Safety Report 4860917-0 (Version None)
Quarter: 2005Q4

REPORT INFORMATION
  Report Type: 
  Country: None (occurrence: None)
  Receive Date: 20051216
  Receipt Date: 20051205
  Transmission Date: 20060501
  Serious: Yes (Hospitalization, Other)
  Sender: FDA-Public Use
  Company Number: 2005137978

PATIENT
  Age: 29 Year
  Sex: Female

DRUGS (9)
  1. LYRICA [Suspect]
     Indication: PAIN
     Dosage: 150 MG (150 MG, 1 IN 1 D), ORAL
     Route: 048
     Dates: start: 20050912, end: 20050919
  2. DIANE-35 (CYPROTERONE ACETATE, ETHINYLESTRADIOL) [Concomitant]
  3. XYLOCAINE [Concomitant]
  4. VERSED [Concomitant]
  5. FENTANYL [Concomitant]
  6. ONDANSETRON [Concomitant]
  7. DILAUDID [Concomitant]
  8. THERAPEUTIC RADIOPHARMACEUTICALS (THERAPEUTIC RADIOPHARMACEUTICALS) [Concomitant]
  9. MINOCYCLINE HYDROCHLORIDE [Concomitant]

REACTIONS (14)
  - ANTINUCLEAR ANTIBODY POSITIVE [None]
  - BLISTER [None]
  - BLOOD BLISTER [None]
  - BLOOD CREATINE PHOSPHOKINASE INCREASED [None]
  - BLOOD THYROID STIMULATING HORMONE INCREASED [None]
  - DRUG INTERACTION [None]
  - FEELING COLD [None]
  - IMPAIRED HEALING [None]
  - OEDEMA PERIPHERAL [None]
  - PITTING OEDEMA [None]
  - SKIN DISCOLOURATION [None]
  - SKIN GRAFT [None]
  - SOMNOLENCE [None]
  - VASCULITIS NECROTISING [None]
